FAERS Safety Report 10781675 (Version 1)
Quarter: 2015Q1

REPORT INFORMATION
  Report Type: Spontaneous
  Country: US (occurrence: US)
  Receive Date: 20150210
  Receipt Date: 20150210
  Transmission Date: 20150721
  Serious: No
  Sender: FDA-Public Use
  Company Number: US-BAUSCH-SYM-2013-14372

PATIENT
  Age: 78 Year
  Sex: Female

DRUGS (1)
  1. XENAZINE [Suspect]
     Active Substance: TETRABENAZINE
     Indication: CHOREA
     Dosage: 1 TABLET AT BEDTIME
     Route: 048
     Dates: start: 20110111

REACTIONS (1)
  - Rash [Unknown]

NARRATIVE: CASE EVENT DATE: 20131219
